FAERS Safety Report 7296823-4 (Version None)
Quarter: 2011Q1

REPORT INFORMATION
  Report Type: 
  Country: None (occurrence: None)
  Receive Date: 20110204
  Receipt Date: 20110124
  Transmission Date: 20110831
  Serious: Yes (Other)
  Sender: FDA-Public Use
  Company Number: B0697050A

PATIENT
  Age: 58 Year
  Sex: Male

DRUGS (1)
  1. AMOXICILLIN AND CLAVULANATE POTASSIUM [Suspect]
     Indication: SKIN INFECTION

REACTIONS (4)
  - PLEOCYTOSIS [None]
  - PHOTOPHOBIA [None]
  - PYREXIA [None]
  - MENINGITIS ASEPTIC [None]
